FAERS Safety Report 5143576-1 (Version None)
Quarter: 2006Q4

REPORT INFORMATION
  Report Type: 
  Country: None (occurrence: None)
  Receive Date: 20061030
  Receipt Date: 20061017
  Transmission Date: 20070319
  Serious: Yes (Other)
  Sender: FDA-Public Use
  Company Number: 2005093128

PATIENT
  Age: 43 Year
  Sex: Female
  Weight: 90.7194 kg

DRUGS (10)
  1. SILDENAFIL CITRATE [Suspect]
     Indication: PULMONARY HYPERTENSION
     Dosage: 300 MG (100 MG, 3 IN 1 D)
     Dates: start: 20030101
  2. SILDENAFIL CITRATE [Suspect]
     Indication: PULMONARY HYPERTENSION
     Dosage: 300 MG (100 MG, 3 IN 1 D)
     Dates: start: 20060901
  3. LASIX [Concomitant]
  4. PREVACID [Concomitant]
  5. ASPIRIN [Concomitant]
  6. DIGOXIN [Concomitant]
  7. ZELNORM [Concomitant]
  8. BENAZEPRIL (BENAZEPRIL) [Concomitant]
  9. WELLBUTRIN XL [Concomitant]
  10. COMBIVENT [Concomitant]

REACTIONS (11)
  - ACTIVITIES OF DAILY LIVING IMPAIRED [None]
  - DRUG EFFECT DECREASED [None]
  - DRUG INEFFECTIVE [None]
  - DYSPNOEA [None]
  - EXERCISE LACK OF [None]
  - FLUSHING [None]
  - HEADACHE [None]
  - HERPES ZOSTER [None]
  - PSORIASIS [None]
  - VISUAL ACUITY REDUCED [None]
  - WEIGHT INCREASED [None]
